FAERS Safety Report 6105474-6 (Version None)
Quarter: 2009Q1

REPORT INFORMATION
  Report Type: 
  Country: None (occurrence: None)
  Receive Date: 20090306
  Receipt Date: 20090303
  Transmission Date: 20090719
  Serious: Yes (Hospitalization)
  Sender: FDA-Public Use
  Company Number: A0771130A

PATIENT
  Age: 56 Year
  Sex: Female

DRUGS (3)
  1. WELLBUTRIN [Suspect]
     Indication: DEPRESSION
     Dosage: 150MG PER DAY
     Route: 048
  2. TRAZODONE HCL [Concomitant]
  3. KLONOPIN [Concomitant]

REACTIONS (3)
  - BACK PAIN [None]
  - DYSGEUSIA [None]
  - NEOPLASM [None]
